FAERS Safety Report 18007537 (Version 1)
Quarter: 2020Q3

REPORT INFORMATION
  Report Type: Report from Study
  Country: DE (occurrence: DE)
  Receive Date: 20200710
  Receipt Date: 20200710
  Transmission Date: 20201103
  Serious: Yes (Hospitalization, Other)
  Sender: FDA-Public Use
  Company Number: DE-BRISTOL-MYERS SQUIBB COMPANY-BMS-2020-020023

PATIENT
  Age: 75 Year
  Sex: Male
  Weight: 104 kg

DRUGS (10)
  1. PANTOPRAZOL [PANTOPRAZOLE] [Concomitant]
     Active Substance: PANTOPRAZOLE
     Indication: PROPHYLAXIS
     Dosage: 40 MILLIGRAM
     Route: 065
     Dates: start: 20200602
  2. FLUVASTATIN [Concomitant]
     Active Substance: FLUVASTATIN SODIUM
     Indication: METABOLIC DISORDER
     Dosage: 80 MILLIGRAM
     Route: 065
  3. CLEXANE [Concomitant]
     Active Substance: ENOXAPARIN SODIUM
     Indication: PROPHYLAXIS
     Dosage: 40 MG/0.4ML
     Route: 065
     Dates: start: 20200110, end: 20200111
  4. NIVOLUMAB [Suspect]
     Active Substance: NIVOLUMAB
     Indication: SQUAMOUS CELL CARCINOMA OF HEAD AND NECK
     Dosage: 3 MILLIGRAM/KILOGRAM, Q2WK
     Route: 042
     Dates: start: 20200110, end: 20200403
  5. METFORMIN [Concomitant]
     Active Substance: METFORMIN HYDROCHLORIDE
     Indication: METABOLIC DISORDER
     Dosage: 2000 MILLIGRAM
     Route: 065
  6. TAMSULOSIN [Concomitant]
     Active Substance: TAMSULOSIN
     Indication: PRODUCT USED FOR UNKNOWN INDICATION
     Dosage: 0.4 MILLIGRAM
     Route: 065
  7. ASPIRIN [ACETYLSALICYLIC ACID] [Concomitant]
     Active Substance: ASPIRIN
     Indication: CEREBROVASCULAR DISORDER
     Dosage: 100 MILLIGRAM
     Route: 065
  8. CLEXANE [Concomitant]
     Active Substance: ENOXAPARIN SODIUM
     Dosage: 40 MG/0.4 ML
     Route: 065
     Dates: start: 20200526, end: 20200527
  9. HUMALOG [Concomitant]
     Active Substance: INSULIN LISPRO
     Indication: METABOLIC DISORDER
     Dosage: UNK
     Route: 065
  10. RAMIPRIL. [Concomitant]
     Active Substance: RAMIPRIL
     Indication: CEREBROVASCULAR DISORDER
     Dosage: 20 MILLIGRAM
     Route: 065

REACTIONS (7)
  - Nasopharyngitis [Recovered/Resolved]
  - Malignant neoplasm progression [Unknown]
  - Pruritus [Recovered/Resolved]
  - Cholangitis [Unknown]
  - Autoimmune hepatitis [Recovered/Resolved]
  - Febrile neutropenia [Recovered/Resolved]
  - Intentional product use issue [Unknown]

NARRATIVE: CASE EVENT DATE: 20200129
